FAERS Safety Report 10464857 (Version 4)
Quarter: 2015Q1

REPORT INFORMATION
  Report Type: Spontaneous
  Country: US (occurrence: US)
  Receive Date: 20140919
  Receipt Date: 20150306
  Transmission Date: 20150720
  Serious: Yes (Hospitalization, Other)
  Sender: FDA-Public Use
  Company Number: US-BRISTOL-MYERS SQUIBB COMPANY-21391180

PATIENT
  Sex: Male

DRUGS (2)
  1. MIRABEGRON [Suspect]
     Active Substance: MIRABEGRON
     Indication: BLADDER DISORDER
     Dosage: 1DF: 25MG FROM 01MAY14-07MAY14.  50MG: 07MAY14-02JUN14.
     Route: 048
     Dates: end: 20140602
  2. COUMADIN [Suspect]
     Active Substance: WARFARIN SODIUM
     Indication: PRODUCT USED FOR UNKNOWN INDICATION
     Dosage: UNK
     Route: 065

REACTIONS (7)
  - Infection [Unknown]
  - Renal cyst [Unknown]
  - Abnormal behaviour [Recovered/Resolved]
  - Neoplasm malignant [Unknown]
  - Encephalopathy [Recovering/Resolving]
  - Creutzfeldt-Jakob disease [Unknown]
  - Paraneoplastic syndrome [Recovering/Resolving]
